FAERS Safety Report 5118635-X (Version None)
Quarter: 2006Q4

REPORT INFORMATION
  Report Type: 
  Country: None (occurrence: None)
  Receive Date: 20061002
  Receipt Date: 20060926
  Transmission Date: 20070319
  Serious: Yes (Other)
  Sender: FDA-Public Use
  Company Number: FR-GLAXOSMITHKLINE-B0439865A

PATIENT

DRUGS (11)
  1. MELPHALAN [Suspect]
     Indication: CENTRAL NERVOUS SYSTEM LYMPHOMA
     Dosage: 140MGM2 PER DAY
     Route: 065
  2. METHOTREXATE [Suspect]
     Indication: CENTRAL NERVOUS SYSTEM LYMPHOMA
     Dosage: 3GM2 CYCLIC
     Route: 065
  3. CARMUSTINE [Suspect]
     Indication: CENTRAL NERVOUS SYSTEM LYMPHOMA
     Dosage: 100MGM2 CYCLIC
     Route: 065
  4. ETOPOSIDE [Suspect]
     Indication: CENTRAL NERVOUS SYSTEM LYMPHOMA
     Dosage: 100MGM2 CYCLIC
     Route: 065
  5. METHYLPREDNISONE [Suspect]
     Indication: CENTRAL NERVOUS SYSTEM LYMPHOMA
     Dosage: 60MGM2 CYCLIC
  6. IFOSFAMIDE [Suspect]
     Indication: CENTRAL NERVOUS SYSTEM LYMPHOMA
     Dosage: 1500MGM2 CYCLIC
     Route: 065
  7. CYTARABINE [Suspect]
     Indication: CENTRAL NERVOUS SYSTEM LYMPHOMA
     Dosage: 1000MGM2 CYCLIC
     Route: 065
  8. CARMUSTINE [Suspect]
     Indication: CENTRAL NERVOUS SYSTEM LYMPHOMA
     Dosage: 300MGM2 CYCLIC
     Route: 065
  9. ETOPOSIDE [Suspect]
     Indication: CENTRAL NERVOUS SYSTEM LYMPHOMA
     Dosage: 200MGM2 CYCLIC
     Route: 065
  10. LEUCOVORIN CALCIUM [Concomitant]
  11. NEUPOGEN [Concomitant]
     Route: 065

REACTIONS (3)
  - COMA [None]
  - EPILEPSY [None]
  - NEUROTOXICITY [None]
